FAERS Safety Report 9539449 (Version 2)
Quarter: 2013Q3

REPORT INFORMATION
  Report Type: Report from Study
  Country: KR (occurrence: KR)
  Receive Date: 20130920
  Receipt Date: 20130920
  Transmission Date: 20140515
  Serious: Yes (Hospitalization, Other)
  Sender: FDA-Public Use
  Company Number: KR-EISAI INC-E7389-04177-CLI-KR

PATIENT
  Age: 49 Year
  Sex: Female
  Weight: 55 kg

DRUGS (20)
  1. E7389 (BOLD) [Suspect]
     Indication: BREAST CANCER
     Route: 041
     Dates: start: 20130827, end: 20130827
  2. AIRTAL [Concomitant]
     Indication: PRODUCT USED FOR UNKNOWN INDICATION
     Route: 048
     Dates: start: 20130814, end: 20130826
  3. MOTILIUM-M [Concomitant]
     Indication: PRODUCT USED FOR UNKNOWN INDICATION
     Route: 048
     Dates: start: 20130814, end: 20130818
  4. DUPHALAC [Concomitant]
     Indication: PRODUCT USED FOR UNKNOWN INDICATION
     Route: 048
     Dates: start: 20130820, end: 20130820
  5. DUPHALAC [Concomitant]
     Route: 048
     Dates: start: 20130821, end: 20130826
  6. ACTIQ [Concomitant]
     Indication: PRODUCT USED FOR UNKNOWN INDICATION
     Route: 048
     Dates: start: 20130814, end: 20130819
  7. IRCODON [Concomitant]
     Indication: PRODUCT USED FOR UNKNOWN INDICATION
     Route: 048
     Dates: start: 20130806, end: 20130814
  8. TRAMADOL HCL [Concomitant]
     Indication: PRODUCT USED FOR UNKNOWN INDICATION
     Route: 042
     Dates: start: 20130809, end: 20130812
  9. KEROMIN [Concomitant]
     Indication: PRODUCT USED FOR UNKNOWN INDICATION
     Route: 042
     Dates: start: 20130817, end: 20130820
  10. KEROMIN [Concomitant]
     Route: 042
     Dates: start: 20130829, end: 20130829
  11. ENTELON [Concomitant]
     Indication: PRODUCT USED FOR UNKNOWN INDICATION
     Route: 048
     Dates: start: 20130809
  12. MUCOSTA [Concomitant]
     Indication: PRODUCT USED FOR UNKNOWN INDICATION
     Route: 048
     Dates: start: 20130814
  13. MACPERAN [Concomitant]
     Indication: PRODUCT USED FOR UNKNOWN INDICATION
     Route: 048
     Dates: start: 20130819
  14. JURNISTA IR [Concomitant]
     Indication: PRODUCT USED FOR UNKNOWN INDICATION
     Route: 048
     Dates: start: 20130814
  15. TARGIN PR [Concomitant]
     Indication: PRODUCT USED FOR UNKNOWN INDICATION
     Route: 048
     Dates: start: 20130806, end: 20130814
  16. TARGIN PR [Concomitant]
     Route: 048
     Dates: start: 20130806, end: 20130814
  17. DUROGESIC [Concomitant]
     Indication: PRODUCT USED FOR UNKNOWN INDICATION
     Route: 062
     Dates: start: 20130806
  18. DUROGESIC [Concomitant]
     Route: 062
     Dates: start: 20130817
  19. CURAN [Concomitant]
     Indication: PRODUCT USED FOR UNKNOWN INDICATION
     Route: 041
     Dates: start: 20130829, end: 20130829
  20. ZANTAC [Concomitant]
     Indication: PRODUCT USED FOR UNKNOWN INDICATION
     Route: 041
     Dates: start: 20130829, end: 20130829

REACTIONS (1)
  - Pseudomonal sepsis [Recovered/Resolved]
